FAERS Safety Report 9154706 (Version 4)
Quarter: 2013Q4

REPORT INFORMATION
  Report Type: Spontaneous
  Country: US (occurrence: US)
  Receive Date: 20130311
  Receipt Date: 20131111
  Transmission Date: 20140711
  Serious: Yes (Hospitalization, Disabling, Other)
  Sender: FDA-Public Use
  Company Number: US-MERCK-1303USA003931

PATIENT
  Sex: Female
  Weight: 95.24 kg

DRUGS (7)
  1. ALENDRONATE SODIUM [Suspect]
     Indication: OSTEOPOROSIS
     Dosage: 70MG/75ML, UNK
     Route: 048
     Dates: start: 20050602, end: 200710
  2. FOSAMAX [Suspect]
     Indication: OSTEOPOROSIS
     Dosage: 70 MG, UNK
     Route: 048
     Dates: start: 20050602, end: 200710
  3. FLUOXETINE [Concomitant]
     Indication: DEPRESSION
     Dosage: 20-40 MG
  4. VITAMIN D (UNSPECIFIED) [Concomitant]
     Dosage: 50000 IU, QW
     Dates: start: 1999
  5. PRILOSEC [Concomitant]
     Dosage: 10-20 MG, UNK
     Dates: start: 2001
  6. CORTICOSTEROIDS (UNSPECIFIED) [Concomitant]
     Dosage: UNK
     Dates: start: 2004, end: 200606
  7. VITAMINS (UNSPECIFIED) [Concomitant]
     Dosage: UNK, QD
     Route: 048
     Dates: start: 1999

REACTIONS (41)
  - Femur fracture [Unknown]
  - Intramedullary rod insertion [Unknown]
  - Open reduction of fracture [Unknown]
  - Humerus fracture [Unknown]
  - Open reduction of fracture [Unknown]
  - Cardiac disorder [Unknown]
  - Surgery [Unknown]
  - Laceration [Unknown]
  - Foot fracture [Recovered/Resolved]
  - Anxiety [Not Recovered/Not Resolved]
  - Depression [Not Recovered/Not Resolved]
  - Medical device removal [Unknown]
  - Osteopenia [Unknown]
  - Fracture [Unknown]
  - Drug intolerance [Unknown]
  - Tooth disorder [Unknown]
  - Oral disorder [Unknown]
  - Uterine dilation and curettage [Unknown]
  - Wound complication [Unknown]
  - Fall [Unknown]
  - Bursitis [Unknown]
  - Essential hypertension [Unknown]
  - Intervertebral disc degeneration [Unknown]
  - Bone disorder [Unknown]
  - Stress [Unknown]
  - Vulva cyst [Unknown]
  - Osteoarthritis [Unknown]
  - Cardiomegaly [Unknown]
  - Rib fracture [Unknown]
  - Coronary artery disease [Unknown]
  - Bundle branch block left [Unknown]
  - Post procedural haemorrhage [Unknown]
  - Osteoarthritis [Unknown]
  - Peptic ulcer [Unknown]
  - Vitamin D deficiency [Unknown]
  - Treatment noncompliance [Unknown]
  - Cardiac murmur [Unknown]
  - Back pain [Not Recovered/Not Resolved]
  - Musculoskeletal discomfort [Unknown]
  - Arthralgia [Unknown]
  - Gastrooesophageal reflux disease [Unknown]
